FAERS Safety Report 21250450 (Version 2)
Quarter: 2022Q3

REPORT INFORMATION
  Report Type: Report from Study
  Country: ES (occurrence: ES)
  Receive Date: 20220824
  Receipt Date: 20220907
  Transmission Date: 20221027
  Serious: Yes (Hospitalization)
  Sender: FDA-Public Use
  Company Number: ES-002147023-NVSC2022ES181611

PATIENT

DRUGS (16)
  1. RUXOLITINIB [Suspect]
     Active Substance: RUXOLITINIB
     Indication: Myelofibrosis
     Dosage: 40 MG (20 MG,2 IN D)
     Route: 048
     Dates: start: 20211006, end: 20211020
  2. RUXOLITINIB [Suspect]
     Active Substance: RUXOLITINIB
     Dosage: 50 MG (25 MG,2 IN 1 D)
     Route: 048
     Dates: start: 20211021, end: 20211116
  3. RUXOLITINIB [Suspect]
     Active Substance: RUXOLITINIB
     Dosage: 30 MG (15 MG,2 IN 1 D)
     Route: 048
     Dates: start: 20211117, end: 20211201
  4. RUXOLITINIB [Suspect]
     Active Substance: RUXOLITINIB
     Dosage: 40 MG (20 MG,2 IN 1 D)
     Route: 048
     Dates: start: 20211202, end: 20220124
  5. RUXOLITINIB [Suspect]
     Active Substance: RUXOLITINIB
     Dosage: 30 MG (15 MG,2 IN 1 D)
     Route: 048
     Dates: start: 20220125
  6. ASPIRIN [Concomitant]
     Active Substance: ASPIRIN
     Indication: Anticoagulant therapy
     Dosage: 100 MG, QD 9100MG, 1 IN 1 D)
     Route: 065
     Dates: start: 20210901
  7. LOSARTAN [Concomitant]
     Active Substance: LOSARTAN
     Indication: Hypertension
     Dosage: 50 MG, QD (50 M 1 IN 1 D)
     Route: 048
     Dates: start: 20211008
  8. LOSARTAN [Concomitant]
     Active Substance: LOSARTAN
     Dosage: 40 MG (20 MG,2 IN 1D)
     Route: 048
     Dates: start: 20211006, end: 20211020
  9. LOSARTAN [Concomitant]
     Active Substance: LOSARTAN
     Dosage: 50 MG (25 MG,2 IN 1 D)
     Route: 048
     Dates: start: 20211021, end: 20211106
  10. LOSARTAN [Concomitant]
     Active Substance: LOSARTAN
     Dosage: 30 MG (15 MG,2 IN 1 D)
     Route: 048
     Dates: start: 20211117, end: 20211201
  11. LOSARTAN [Concomitant]
     Active Substance: LOSARTAN
     Dosage: 40 MG (20 MG,2 IN 1 D)
     Route: 048
     Dates: start: 20211202, end: 20220124
  12. LOSARTAN [Concomitant]
     Active Substance: LOSARTAN
     Dosage: 30 MG (15 MG,2 IN 1 D)
     Route: 048
     Dates: start: 20220125
  13. ARANESP [Concomitant]
     Active Substance: DARBEPOETIN ALFA
     Indication: Prophylaxis
     Dosage: 150 MG, QD (150 MG,1 IN 1 D)
     Route: 058
     Dates: start: 20210901
  14. LEVOTHYROXINE SODIUM [Concomitant]
     Active Substance: LEVOTHYROXINE SODIUM
     Indication: Hypothyroidism
     Dosage: 25 MG, QD (25 MG,1 IN 1 D)
     Route: 048
     Dates: start: 20210901
  15. DIAZEPAM [Concomitant]
     Active Substance: DIAZEPAM
     Indication: Arthralgia
     Dosage: 1.5 MG, QD (1.5 GM,1 IN 1 D)
     Route: 048
     Dates: start: 20220125
  16. METAMIZOLE MAGNESIUM [Concomitant]
     Active Substance: METAMIZOLE MAGNESIUM
     Indication: Arthralgia
     Dosage: 575 MG, PRN
     Route: 048
     Dates: start: 20220322

REACTIONS (2)
  - COVID-19 [Recovered/Resolved]
  - Respiratory failure [Not Recovered/Not Resolved]

NARRATIVE: CASE EVENT DATE: 20220728
